FAERS Safety Report 4474701-3 (Version None)
Quarter: 2004Q4

REPORT INFORMATION
  Report Type: 
  Country: None (occurrence: None)
  Receive Date: 20041012
  Receipt Date: 20040930
  Transmission Date: 20050328
  Serious: Yes (Other)
  Sender: FDA-Public Use
  Company Number: 200412752GDS

PATIENT

DRUGS (5)
  1. LEVITRA [Suspect]
     Indication: ERECTILE DYSFUNCTION
     Dosage: PRN, ORAL
     Route: 048
  2. TRITACE [Concomitant]
  3. DILATREND [Concomitant]
  4. ALDACTONE [Concomitant]
  5. CORDARONE [Concomitant]

REACTIONS (3)
  - DRUG EFFECT DECREASED [None]
  - HYPOTENSION [None]
  - UNEVALUABLE EVENT [None]
